FAERS Safety Report 15025533 (Version 2)
Quarter: 2018Q2

REPORT INFORMATION
  Report Type: Spontaneous
  Country: US (occurrence: US)
  Receive Date: 20180618
  Receipt Date: 20180621
  Transmission Date: 20180711
  Serious: Yes (Life-Threatening, Hospitalization)
  Sender: FDA-Public Use
  Company Number: US-ALLERGAN-1831019US

PATIENT
  Age: 64 Year
  Sex: Male
  Weight: 64.7 kg

DRUGS (4)
  1. NORCO [Suspect]
     Active Substance: ACETAMINOPHEN\HYDROCODONE BITARTRATE
     Indication: PRODUCT USED FOR UNKNOWN INDICATION
     Dosage: UNK
     Route: 065
     Dates: end: 20180516
  2. AXITINIB [Suspect]
     Active Substance: AXITINIB
     Indication: PRODUCT USED FOR UNKNOWN INDICATION
     Dosage: 5 MG, BID
     Route: 048
     Dates: start: 20180124, end: 20180328
  3. AXITINIB [Suspect]
     Active Substance: AXITINIB
     Dosage: 3 MG, BID
     Route: 048
     Dates: start: 20180418, end: 20180509
  4. AXITINIB [Suspect]
     Active Substance: AXITINIB
     Dosage: 2 MG, BID
     Dates: start: 20180523

REACTIONS (1)
  - Hepatitis [Recovered/Resolved]

NARRATIVE: CASE EVENT DATE: 20180328
